FAERS Safety Report 20263621 (Version 4)
Quarter: 2023Q4

REPORT INFORMATION
  Report Type: Spontaneous
  Country: PL (occurrence: None)
  Receive Date: 20211231
  Receipt Date: 20231004
  Transmission Date: 20240110
  Serious: Yes (Other)
  Sender: FDA-Public Use
  Company Number: 2021A899326

PATIENT
  Age: 88 Year
  Sex: Male

DRUGS (46)
  1. ROSUVASTATIN CALCIUM [Suspect]
     Active Substance: ROSUVASTATIN CALCIUM
     Indication: Product used for unknown indication
     Dosage: 20 MG, QD
     Route: 048
     Dates: start: 20211112
  2. ROSUVASTATIN CALCIUM [Suspect]
     Active Substance: ROSUVASTATIN CALCIUM
     Indication: Product used for unknown indication
     Dosage: 10 MG, QD
     Route: 048
  3. ROSUVASTATIN CALCIUM [Suspect]
     Active Substance: ROSUVASTATIN CALCIUM
     Indication: Product used for unknown indication
     Dosage: 10 MG
     Route: 048
  4. RAMIPRIL [Suspect]
     Active Substance: RAMIPRIL
     Indication: Product used for unknown indication
     Dosage: 2.5 MG, QD
     Route: 065
  5. RAMIPRIL [Suspect]
     Active Substance: RAMIPRIL
     Indication: Product used for unknown indication
     Dosage: 2.5 MG, BID
     Route: 065
  6. METOPROLOL TARTRATE [Suspect]
     Active Substance: METOPROLOL TARTRATE
     Indication: Product used for unknown indication
     Dosage: 100 MG, BID
     Route: 065
  7. METOPROLOL TARTRATE [Suspect]
     Active Substance: METOPROLOL TARTRATE
     Indication: Product used for unknown indication
     Dosage: 50 ? 25 ? 25 MG
     Route: 065
  8. METOPROLOL TARTRATE [Suspect]
     Active Substance: METOPROLOL TARTRATE
     Indication: Product used for unknown indication
     Dosage: 25 MG, TID
     Route: 065
  9. METOPROLOL TARTRATE [Suspect]
     Active Substance: METOPROLOL TARTRATE
     Indication: Product used for unknown indication
     Dosage: 25 MG, TID
     Route: 065
  10. METOPROLOL TARTRATE [Suspect]
     Active Substance: METOPROLOL TARTRATE
     Indication: Product used for unknown indication
     Dosage: 5 MG, QD
     Route: 065
     Dates: start: 20211112
  11. ATORVASTATIN CALCIUM [Suspect]
     Active Substance: ATORVASTATIN CALCIUM
     Indication: Product used for unknown indication
     Dosage: 40 MG, QD
     Route: 065
  12. ATORVASTATIN CALCIUM [Suspect]
     Active Substance: ATORVASTATIN CALCIUM
     Indication: Product used for unknown indication
     Dosage: 40 MG, QD
     Route: 065
  13. ATORVASTATIN CALCIUM [Suspect]
     Active Substance: ATORVASTATIN CALCIUM
     Indication: Product used for unknown indication
     Dosage: 40 MG, QD
     Route: 065
  14. FUROSEMIDE [Suspect]
     Active Substance: FUROSEMIDE
     Indication: Product used for unknown indication
     Dosage: 40 MG, QD
     Route: 065
  15. FUROSEMIDE [Suspect]
     Active Substance: FUROSEMIDE
     Indication: Product used for unknown indication
     Dosage: 50 MG, QD
     Route: 065
  16. FUROSEMIDE [Suspect]
     Active Substance: FUROSEMIDE
     Indication: Product used for unknown indication
     Dosage: 40 MG, BID
     Route: 065
  17. FUROSEMIDE [Suspect]
     Active Substance: FUROSEMIDE
     Indication: Product used for unknown indication
     Dosage: 40 MG, BID
     Route: 065
  18. FUROSEMIDE [Suspect]
     Active Substance: FUROSEMIDE
     Indication: Product used for unknown indication
     Dosage: 40 MG, BID
     Route: 065
  19. FUROSEMIDE [Suspect]
     Active Substance: FUROSEMIDE
     Indication: Product used for unknown indication
     Dosage: 40 MG QAM
     Route: 065
  20. FUROSEMIDE [Suspect]
     Active Substance: FUROSEMIDE
     Indication: Product used for unknown indication
     Dosage: 40 MG, BID
     Route: 065
     Dates: start: 20211112
  21. OMEPRAZOLE [Suspect]
     Active Substance: OMEPRAZOLE
     Indication: Product used for unknown indication
     Dosage: 20 MG, QD
     Route: 065
     Dates: start: 20211112
  22. OMEPRAZOLE [Suspect]
     Active Substance: OMEPRAZOLE
     Indication: Product used for unknown indication
     Dosage: 10 MG, QD
     Route: 065
  23. OMEPRAZOLE [Suspect]
     Active Substance: OMEPRAZOLE
     Indication: Product used for unknown indication
     Dosage: 20 MG, QD
     Route: 065
  24. OMEPRAZOLE [Suspect]
     Active Substance: OMEPRAZOLE
     Indication: Product used for unknown indication
     Dosage: 20 MG, QD
     Route: 065
  25. OMEPRAZOLE [Suspect]
     Active Substance: OMEPRAZOLE
     Indication: Product used for unknown indication
     Dosage: 20 MG, QD
     Route: 065
  26. SACUBITRIL\VALSARTAN [Suspect]
     Active Substance: SACUBITRIL\VALSARTAN
     Indication: Product used for unknown indication
     Dosage: (24/26 MG)
     Route: 065
  27. SACUBITRIL\VALSARTAN [Suspect]
     Active Substance: SACUBITRIL\VALSARTAN
     Indication: Product used for unknown indication
     Dosage: DOSAGE FORM (24/26 MG)
     Route: 065
  28. SACUBITRIL\VALSARTAN [Suspect]
     Active Substance: SACUBITRIL\VALSARTAN
     Indication: Product used for unknown indication
     Dosage: 1 DF, QD
     Route: 065
     Dates: start: 20211112
  29. SACUBITRIL\VALSARTAN [Suspect]
     Active Substance: SACUBITRIL\VALSARTAN
     Indication: Product used for unknown indication
     Dosage: 2 DOSAGE FORM (49/51 MG ), BID
     Route: 065
  30. TORSEMIDE [Suspect]
     Active Substance: TORSEMIDE
     Indication: Product used for unknown indication
     Dosage: 10 MG, QD
     Route: 065
  31. TORSEMIDE [Suspect]
     Active Substance: TORSEMIDE
     Indication: Product used for unknown indication
     Dosage: 15 MG, QD
     Route: 065
  32. TORSEMIDE [Suspect]
     Active Substance: TORSEMIDE
     Indication: Product used for unknown indication
     Dosage: 15 MG, QD
     Route: 065
  33. TORSEMIDE [Suspect]
     Active Substance: TORSEMIDE
     Indication: Product used for unknown indication
     Dosage: 10 MG, BID
     Route: 065
  34. TORSEMIDE [Suspect]
     Active Substance: TORSEMIDE
     Indication: Product used for unknown indication
     Dosage: 10 MG, BID
     Route: 065
     Dates: start: 20211112
  35. TORSEMIDE [Suspect]
     Active Substance: TORSEMIDE
     Indication: Product used for unknown indication
     Dosage: 10 MG
     Route: 065
  36. EPLERENONE [Suspect]
     Active Substance: EPLERENONE
     Indication: Product used for unknown indication
     Dosage: 25 MG, QD
     Route: 065
  37. EPLERENONE [Suspect]
     Active Substance: EPLERENONE
     Indication: Product used for unknown indication
     Dosage: 25 MG, QD
     Route: 065
     Dates: start: 20211112
  38. EPLERENONE [Suspect]
     Active Substance: EPLERENONE
     Indication: Product used for unknown indication
     Dosage: 50 MG, QD
     Route: 065
  39. EPLERENONE [Suspect]
     Active Substance: EPLERENONE
     Indication: Product used for unknown indication
     Dosage: 50 MG, QD
     Route: 065
  40. EPLERENONE [Suspect]
     Active Substance: EPLERENONE
     Indication: Product used for unknown indication
     Dosage: 25 MG, QD
     Route: 065
  41. APIXABAN [Suspect]
     Active Substance: APIXABAN
     Indication: Product used for unknown indication
     Dosage: 2.5 MG, BID
     Route: 065
  42. APIXABAN [Suspect]
     Active Substance: APIXABAN
     Indication: Product used for unknown indication
     Dosage: 2.5 MG, BID
     Route: 065
     Dates: start: 20211112
  43. APIXABAN [Suspect]
     Active Substance: APIXABAN
     Indication: Product used for unknown indication
     Dosage: 2.5 MG, BID
     Route: 065
  44. ASPIRIN [Suspect]
     Active Substance: ASPIRIN
     Indication: Product used for unknown indication
     Dosage: 2.5 MG, BID
     Route: 065
  45. UNSPECIFIED INGREDIENT [Suspect]
     Active Substance: UNSPECIFIED INGREDIENT
     Indication: Product used for unknown indication
     Route: 065
  46. UNSPECIFIED INGREDIENT [Suspect]
     Active Substance: UNSPECIFIED INGREDIENT
     Indication: Product used for unknown indication
     Route: 065

REACTIONS (18)
  - Pulmonary congestion [Unknown]
  - Urinary tract infection [Unknown]
  - Myopathy [Unknown]
  - Dilated cardiomyopathy [Unknown]
  - Cardiac failure chronic [Unknown]
  - Cardiomyopathy [Unknown]
  - Cardiogenic shock [Unknown]
  - Atrial thrombosis [Unknown]
  - Sinus tachycardia [Unknown]
  - Pneumonia [Unknown]
  - Pulmonary congestion [Unknown]
  - Disease progression [Unknown]
  - Cardiac failure [Unknown]
  - Chronic kidney disease [Unknown]
  - Ventricular arrhythmia [Unknown]
  - Atrial fibrillation [Unknown]
  - Low cardiac output syndrome [Unknown]
  - Dyskinesia [Unknown]
